FAERS Safety Report 5718989-7 (Version None)
Quarter: 2008Q2

REPORT INFORMATION
  Report Type: 
  Country: None (occurrence: None)
  Receive Date: 20080425
  Receipt Date: 20080416
  Transmission Date: 20081010
  Serious: Yes (Other)
  Sender: FDA-Public Use
  Company Number: PHHY2008CA05822

PATIENT
  Age: 84 Year
  Sex: Female

DRUGS (10)
  1. EXELON [Suspect]
     Indication: DEMENTIA ALZHEIMER'S TYPE
     Dosage: 1.5 MG, BID
     Route: 048
     Dates: start: 20070412
  2. EXELON [Suspect]
     Dosage: 3 MG, BID
     Route: 048
     Dates: start: 20070512
  3. EXELON [Suspect]
     Dosage: 4.5 MG, BID
     Route: 048
     Dates: start: 20070801, end: 20070901
  4. NORVASC [Concomitant]
     Dosage: 5 MG
  5. AVAPRO [Concomitant]
     Dosage: 150 MG TOD
  6. VITAMIN D [Concomitant]
  7. TRAZODONE HCL [Concomitant]
     Dosage: 25 MG, QHS
  8. CRESTOR [Suspect]
     Dosage: 10 MG
     Dates: start: 20070901
  9. TYLENOL [Concomitant]
  10. SINGULAIR [Concomitant]

REACTIONS (10)
  - ANXIETY DISORDER [None]
  - CEREBRAL ATROPHY [None]
  - CONFUSIONAL STATE [None]
  - DISEASE PROGRESSION [None]
  - HALLUCINATION, TACTILE [None]
  - HALLUCINATION, VISUAL [None]
  - HEADACHE [None]
  - NUCLEAR MAGNETIC RESONANCE IMAGING BRAIN ABNORMAL [None]
  - PANIC ATTACK [None]
  - PULMONARY FUNCTION CHALLENGE TEST ABNORMAL [None]
